FAERS Safety Report 25655206 (Version 2)
Quarter: 2025Q3

REPORT INFORMATION
  Report Type: Spontaneous
  Country: AR (occurrence: AR)
  Receive Date: 20250807
  Receipt Date: 20250918
  Transmission Date: 20251021
  Serious: Yes (Other)
  Sender: SANDOZ
  Company Number: AR-002147023-NVSC2025AR098328

PATIENT
  Age: 47 Year
  Sex: Female

DRUGS (10)
  1. FULVESTRANT [Suspect]
     Active Substance: FULVESTRANT
     Indication: Breast cancer metastatic
     Dosage: 500 MG, QMO
     Route: 030
     Dates: start: 20241021
  2. FULVESTRANT [Suspect]
     Active Substance: FULVESTRANT
     Indication: Breast cancer female
  3. KISQALI [Suspect]
     Active Substance: RIBOCICLIB SUCCINATE
     Indication: Breast cancer metastatic
     Dosage: 3 DOSAGE FORM, QD (IN THE MORNING)
     Route: 065
     Dates: start: 20241021
  4. KISQALI [Suspect]
     Active Substance: RIBOCICLIB SUCCINATE
     Indication: Breast cancer female
     Dosage: 600 MG, QD (3 OF 200MG)
     Route: 048
     Dates: start: 20241021
  5. ZOLEDRONIC ACID [Suspect]
     Active Substance: ZOLEDRONIC ACID
     Indication: Breast cancer metastatic
     Dosage: 4 MG, QMO
     Route: 042
     Dates: start: 20241021
  6. ZOLEDRONIC ACID [Suspect]
     Active Substance: ZOLEDRONIC ACID
     Indication: Breast cancer female
  7. GOSERELIN [Concomitant]
     Active Substance: GOSERELIN
     Indication: Breast cancer female
     Dosage: UNK, QMO
     Route: 065
  8. GOSERELIN [Concomitant]
     Active Substance: GOSERELIN
     Indication: Breast cancer metastatic
     Dosage: UNK, QMO AMPOULE
     Route: 058
     Dates: start: 20241021
  9. GOSERELIN [Concomitant]
     Active Substance: GOSERELIN
     Indication: Menstrual disorder
  10. VITAMIN D [Concomitant]
     Active Substance: VITAMIN D NOS
     Indication: Bone disorder
     Dosage: UNK, QMO
     Route: 065

REACTIONS (16)
  - Second primary malignancy [Unknown]
  - Bone cancer [Unknown]
  - Spinal pain [Recovering/Resolving]
  - Metastases to bone [Unknown]
  - Memory impairment [Unknown]
  - Pain [Recovering/Resolving]
  - Anxiety [Recovering/Resolving]
  - Somnolence [Unknown]
  - Hormone level abnormal [Unknown]
  - Discomfort [Unknown]
  - Malaise [Unknown]
  - Stress [Unknown]
  - Insomnia [Unknown]
  - Nervousness [Recovering/Resolving]
  - Back pain [Recovering/Resolving]
  - Arthralgia [Recovering/Resolving]

NARRATIVE: CASE EVENT DATE: 20250101
